FAERS Safety Report 7473079-0 (Version None)
Quarter: 2011Q2

REPORT INFORMATION
  Report Type: 
  Country: None (occurrence: None)
  Receive Date: 20110511
  Receipt Date: 20110502
  Transmission Date: 20111010
  Serious: Yes (Life-Threatening, Hospitalization)
  Sender: FDA-Public Use
  Company Number: FR-ELI_LILLY_AND_COMPANY-FR201102005800

PATIENT
  Sex: Female
  Weight: 42 kg

DRUGS (2)
  1. OLANZAPINE [Suspect]
     Indication: DECREASED APPETITE
     Dosage: 405 MG, 3/W
     Route: 030
     Dates: start: 20100428, end: 20110221
  2. ZYPREXA [Suspect]
     Indication: DECREASED APPETITE
     Dosage: 10 MG, QD
     Route: 048
     Dates: start: 20100415, end: 20100512

REACTIONS (15)
  - HYPOTONIA [None]
  - BLOOD PRESSURE DECREASED [None]
  - ATRIAL FLUTTER [None]
  - OFF LABEL USE [None]
  - SEDATION [None]
  - AORTIC VALVE INCOMPETENCE [None]
  - MALAISE [None]
  - ALTERED STATE OF CONSCIOUSNESS [None]
  - AGITATION [None]
  - CONFUSIONAL STATE [None]
  - TACHYCARDIA [None]
  - ASTHENIA [None]
  - DYSARTHRIA [None]
  - MYOCLONUS [None]
  - LOSS OF CONSCIOUSNESS [None]
